FAERS Safety Report 7503624-8 (Version None)
Quarter: 2011Q2

REPORT INFORMATION
  Report Type: 
  Country: None (occurrence: None)
  Receive Date: 20110525
  Receipt Date: 20110516
  Transmission Date: 20111010
  Serious: Yes (Other)
  Sender: FDA-Public Use
  Company Number: JP-ASTRAZENECA-2011SE22818

PATIENT
  Age: 21859 Day
  Sex: Male

DRUGS (16)
  1. FUNGUARD [Concomitant]
     Dates: start: 20110329
  2. PRECEDEX [Concomitant]
     Dates: start: 20110124
  3. ONOACT [Concomitant]
     Dates: start: 20110208
  4. PANTOL [Concomitant]
     Dates: start: 20110310
  5. SEROQUEL [Suspect]
     Route: 048
     Dates: start: 20110331, end: 20110401
  6. SEROQUEL [Suspect]
     Route: 048
     Dates: start: 20110418, end: 20110419
  7. SILECE [Suspect]
     Indication: INSOMNIA
     Route: 048
     Dates: start: 20110402, end: 20110408
  8. HANP [Concomitant]
     Dates: start: 20110203
  9. AMBISOME [Concomitant]
     Dates: start: 20110301
  10. SEROQUEL [Suspect]
     Route: 048
     Dates: start: 20110402, end: 20110403
  11. PANSPORIN [Concomitant]
     Dates: start: 20110402, end: 20110407
  12. SEROQUEL [Suspect]
     Indication: DELIRIUM
     Route: 048
     Dates: start: 20110307, end: 20110330
  13. SILECE [Suspect]
     Route: 048
     Dates: start: 20110418
  14. NOREPINEPHRINE BITARTRATE [Concomitant]
     Dates: start: 20110129
  15. OMEPRAZOLE [Concomitant]
     Dates: start: 20110210
  16. ZYPREXA [Concomitant]
     Dates: start: 20110403

REACTIONS (2)
  - HYPOTENSION [None]
  - OFF LABEL USE [None]
